FAERS Safety Report 6969409-6 (Version None)
Quarter: 2010Q3

REPORT INFORMATION
  Report Type: 
  Country: None (occurrence: None)
  Receive Date: 20100902
  Receipt Date: 20100823
  Transmission Date: 20110219
  Serious: Yes (Death)
  Sender: FDA-Public Use
  Company Number: CIP10001921

PATIENT
  Age: 81 Year
  Sex: Female

DRUGS (12)
  1. ACTONEL [Suspect]
     Dosage: 150 MG ONCE MONTHLY, ORAL
     Route: 048
     Dates: start: 20100718
  2. ATIVAN [Concomitant]
  3. CALTRATE /00108001/ (CALCIUM CARBONATE) [Concomitant]
  4. GENTEAL /00445101/ (HYPROMELLOSE) [Concomitant]
  5. KENACOMB (GRAMICIDIN, NEOMYCIN SULFATE, NYSTATIN, TRIAMCINOLONE ACETON [Concomitant]
  6. FISH OIL (FISH OIL) [Concomitant]
  7. CYANOCOBALAMIN [Concomitant]
  8. PREDNISOLONE [Concomitant]
  9. SPIRIVA [Concomitant]
  10. SYSTANE (MACROGOL, PROPYLENE GLYCOL) [Concomitant]
  11. ZOLOFT [Concomitant]
  12. NEXIUM [Concomitant]

REACTIONS (3)
  - LOSS OF CONSCIOUSNESS [None]
  - MYOCARDIAL INFARCTION [None]
  - TOOTHACHE [None]
